FAERS Safety Report 8391576-0 (Version None)
Quarter: 2012Q2

REPORT INFORMATION
  Report Type: 
  Country: None (occurrence: None)
  Receive Date: 20120529
  Receipt Date: 20120521
  Transmission Date: 20120825
  Serious: Yes (Hospitalization)
  Sender: FDA-Public Use
  Company Number: DK-ASTRAZENECA-2012SE32549

PATIENT
  Age: 59 Year
  Sex: Female
  Weight: 58 kg

DRUGS (9)
  1. BRILINTA [Suspect]
     Indication: INTRACRANIAL ANEURYSM
     Dosage: 3 TABLETS/3
     Route: 048
     Dates: start: 20120426
  2. MAGNYL SVAGE ^DAK^ [Concomitant]
     Indication: THROMBOSIS PROPHYLAXIS
     Dates: start: 20120430
  3. METRONIDAZOLE [Concomitant]
     Dates: start: 20120503
  4. CEFUROXIME [Concomitant]
     Indication: INFECTION
     Dates: start: 20120430
  5. PERINDOPRIL ERBUMINE [Concomitant]
     Indication: HYPERTENSION
     Dates: start: 20120430
  6. NEXIUM [Concomitant]
     Indication: GASTRITIS
     Dates: start: 20120430
  7. AMLODIPIN ^ACTAVIS^ [Concomitant]
     Indication: HYPERTENSION
     Dates: start: 20120430
  8. ENOXAPARIN SODIUM [Concomitant]
     Indication: THROMBOSIS PROPHYLAXIS
     Dates: start: 20120430
  9. ACETAMINOPHEN [Concomitant]
     Indication: PAIN
     Dates: start: 20120430

REACTIONS (1)
  - BRADYCARDIA [None]
